FAERS Safety Report 21300223 (Version 5)
Quarter: 2022Q4

REPORT INFORMATION
  Report Type: Other
  Country: JP (occurrence: JP)
  Receive Date: 20220906
  Receipt Date: 20221219
  Transmission Date: 20230113
  Serious: Yes (Hospitalization, Other)
  Sender: FDA-Public Use
  Company Number: JP-ASTELLAS-2022JP009644

PATIENT
  Age: 66 Year
  Sex: Male
  Weight: 54.6 kg

DRUGS (20)
  1. PADCEV [Suspect]
     Active Substance: ENFORTUMAB VEDOTIN-EJFV
     Indication: Transitional cell carcinoma
     Dosage: 1.25 MG/KG (60 ML), ONCE WEEKLY
     Route: 041
     Dates: start: 20220607, end: 20220621
  2. PADCEV [Suspect]
     Active Substance: ENFORTUMAB VEDOTIN-EJFV
     Dosage: 1.25 MG/KG (63.13 MG), ONCE WEEKLY
     Route: 041
     Dates: start: 20220707, end: 20220721
  3. PADCEV [Suspect]
     Active Substance: ENFORTUMAB VEDOTIN-EJFV
     Dosage: 1.25 MG/KG (62 MG), ONCE WEEKLY
     Route: 041
     Dates: start: 20220816, end: 20220901
  4. PADCEV [Suspect]
     Active Substance: ENFORTUMAB VEDOTIN-EJFV
     Dosage: 1.25 MG/KG (64.13 MG), ONCE WEEKLY
     Route: 041
     Dates: start: 20220915, end: 20220922
  5. OXYCODONE [Concomitant]
     Active Substance: OXYCODONE
     Indication: Product used for unknown indication
     Dosage: UNK UNK, UNKNOWN FREQ.
     Route: 065
  6. METHOTREXATE [Concomitant]
     Active Substance: METHOTREXATE
     Indication: Product used for unknown indication
     Dosage: UNK UNK, UNKNOWN FREQ.
     Route: 065
  7. VINBLASTINE SULFATE [Concomitant]
     Active Substance: VINBLASTINE SULFATE
     Indication: Product used for unknown indication
     Dosage: UNK UNK, UNKNOWN FREQ.
     Route: 065
  8. EPIRUBICIN HYDROCHLORIDE [Concomitant]
     Active Substance: EPIRUBICIN HYDROCHLORIDE
     Indication: Product used for unknown indication
     Dosage: UNK UNK, UNKNOWN FREQ.
     Route: 065
  9. CISPLATIN [Concomitant]
     Active Substance: CISPLATIN
     Indication: Product used for unknown indication
     Dosage: UNK UNK, UNKNOWN FREQ.
     Route: 065
  10. AMLODIPINE [Concomitant]
     Active Substance: AMLODIPINE BESYLATE
     Indication: Hypertension
     Route: 048
  11. ATORVASTATIN [Concomitant]
     Active Substance: ATORVASTATIN
     Indication: Hyperlipidaemia
     Route: 048
  12. HYDROMORPHONE HYDROCHLORIDE [Concomitant]
     Active Substance: HYDROMORPHONE HYDROCHLORIDE
     Indication: Cancer pain
     Route: 048
     Dates: start: 20220120
  13. HYDROMORPHONE HYDROCHLORIDE [Concomitant]
     Active Substance: HYDROMORPHONE HYDROCHLORIDE
     Indication: Cancer pain
     Dosage: 2 MG, AS NEEDED (WHEN THE CANCER PAIN WAS NOTED)
     Route: 048
     Dates: start: 20220121
  14. Azunol [Concomitant]
     Indication: Injection site swelling
     Dosage: UNK UNK, ONCE TO TWICE/DAY
     Route: 065
     Dates: start: 20220612, end: 20220621
  15. Azunol [Concomitant]
     Indication: Injection site pain
  16. Rinderon [Concomitant]
     Indication: Injection site swelling
     Dosage: UNK UNK, ONCE TO TWICE/DAY
     Route: 065
     Dates: start: 20220613, end: 20220621
  17. Rinderon [Concomitant]
     Indication: Injection site pain
  18. GLYCOSAMINOGLYCANS [Concomitant]
     Active Substance: GLYCOSAMINOGLYCANS
     Indication: Papule
     Dosage: UNK UNK, FREQUENTLY
     Route: 065
     Dates: start: 20220621, end: 20220721
  19. GLYCOSAMINOGLYCANS [Concomitant]
     Active Substance: GLYCOSAMINOGLYCANS
     Indication: Urticaria
  20. REPAGLINIDE [Concomitant]
     Active Substance: REPAGLINIDE
     Indication: Diabetes mellitus
     Dosage: 0.25 MG, THRICE DAILY
     Route: 048
     Dates: start: 20220714

REACTIONS (7)
  - Malaise [Recovering/Resolving]
  - Injection site swelling [Recovering/Resolving]
  - Injection site pain [Recovering/Resolving]
  - Urticaria [Recovering/Resolving]
  - Papule [Recovering/Resolving]
  - Blood sodium decreased [Recovering/Resolving]
  - Anaemia [Recovering/Resolving]

NARRATIVE: CASE EVENT DATE: 20220612
